FAERS Safety Report 24827895 (Version 1)
Quarter: 2025Q1

REPORT INFORMATION
  Report Type: Report from Study
  Country: AT (occurrence: AT)
  Receive Date: 20250109
  Receipt Date: 20250109
  Transmission Date: 20250409
  Serious: Yes (Congenital Anomaly, Other)
  Sender: MYLAN
  Company Number: AT-UCBSA-2024068170

PATIENT

DRUGS (2)
  1. LEVETIRACETAM [Suspect]
     Active Substance: LEVETIRACETAM
     Indication: Product used for unknown indication
     Dosage: 3000 MILLIGRAM, QD (DAILY DOSE)
     Route: 064
  2. CARBAMAZEPINE [Concomitant]
     Active Substance: CARBAMAZEPINE
     Indication: Product used for unknown indication
     Route: 065

REACTIONS (2)
  - Tuberous sclerosis complex [Unknown]
  - Foetal exposure during pregnancy [Unknown]
